FAERS Safety Report 7394335-0 (Version None)
Quarter: 2011Q2

REPORT INFORMATION
  Report Type: 
  Country: None (occurrence: None)
  Receive Date: 20110405
  Receipt Date: 20110331
  Transmission Date: 20111010
  Serious: Yes (Life-Threatening, Hospitalization)
  Sender: FDA-Public Use
  Company Number: FR-PFIZER INC-2011071430

PATIENT
  Age: 61 Year
  Sex: Female

DRUGS (11)
  1. LYRICA [Suspect]
     Dosage: UNK
     Route: 048
     Dates: end: 20110122
  2. COLCHIMAX [Suspect]
     Dosage: UNK
     Route: 048
     Dates: start: 20110118, end: 20110122
  3. FEBUXOSTAT [Suspect]
     Dosage: UNK
     Route: 048
     Dates: start: 20110118, end: 20110122
  4. UVEDOSE [Concomitant]
  5. LECTIL [Concomitant]
  6. SPECIAFOLDINE [Concomitant]
  7. DIAMOX [Suspect]
     Dosage: UNK
     Route: 048
     Dates: end: 20110122
  8. FORTZAAR [Suspect]
     Dosage: UNK
     Route: 048
     Dates: end: 20110122
  9. BUTAZOLIDIN [Suspect]
     Dosage: UNK
     Route: 048
     Dates: end: 20110118
  10. ALLOPURINOL [Suspect]
     Dosage: UNK
     Route: 048
     Dates: end: 20110118
  11. KERLONE [Concomitant]

REACTIONS (5)
  - DIARRHOEA [None]
  - PANCYTOPENIA [None]
  - DECREASED APPETITE [None]
  - ASTHENIA [None]
  - RENAL FAILURE ACUTE [None]
